FAERS Safety Report 25869517 (Version 1)
Quarter: 2025Q4

REPORT INFORMATION
  Report Type: Spontaneous
  Country: EU (occurrence: EU)
  Receive Date: 20251001
  Receipt Date: 20251001
  Transmission Date: 20260117
  Serious: Yes (Other)
  Sender: PFIZER
  Company Number: None

PATIENT
  Age: 28 Year
  Sex: Female
  Weight: 98 kg

DRUGS (1)
  1. DEPO-PROVERA [Suspect]
     Active Substance: MEDROXYPROGESTERONE ACETATE
     Indication: Endometriosis
     Dosage: FREQ:7 WK
     Route: 030
     Dates: start: 201402

REACTIONS (5)
  - Spinal fracture [Not Recovered/Not Resolved]
  - Blood oestrogen decreased [Unknown]
  - Osteopenia [Not Recovered/Not Resolved]
  - Uterine cervix stenosis [Unknown]
  - Off label use [Unknown]

NARRATIVE: CASE EVENT DATE: 20140201
